FAERS Safety Report 6630711 (Version 1)
Quarter: 2020Q3

REPORT INFORMATION
  Report Type: Report from Study
  Country: IE (occurrence: IE)
  Receive Date: 20080501
  Receipt Date: 20080501
  Transmission Date: 20201105
  Serious: Yes (Hospitalization)
  Sender: FDA-Public Use
  Company Number: IE-JNJFOC-20070202731

PATIENT
  Age: 45 Year
  Sex: Male

DRUGS (10)
  1. VALPROIC ACID. [Concomitant]
     Active Substance: VALPROIC ACID
     Route: 048
  2. ETRAVIRINE [Suspect]
     Active Substance: ETRAVIRINE
     Indication: HIV INFECTION
     Route: 048
  3. PREZISTA [Suspect]
     Active Substance: DARUNAVIR ETHANOLATE
     Indication: HIV INFECTION
     Route: 048
  4. COMBIVIR [Concomitant]
     Active Substance: LAMIVUDINE\ZIDOVUDINE
     Indication: HIV INFECTION
     Route: 048
  5. ETRAVIRINE [Suspect]
     Active Substance: ETRAVIRINE
     Route: 048
  6. TENOFOVIR [Concomitant]
     Active Substance: TENOFOVIR
     Indication: HIV INFECTION
     Route: 048
  7. NORVIR [Suspect]
     Active Substance: RITONAVIR
     Indication: HIV INFECTION
     Route: 048
  8. KEPPRA [Concomitant]
     Active Substance: LEVETIRACETAM
     Route: 048
  9. TOPAMAX [Concomitant]
     Active Substance: TOPIRAMATE
     Route: 048
  10. PREZISTA [Suspect]
     Active Substance: DARUNAVIR ETHANOLATE
     Route: 048

REACTIONS (1)
  - Stevens-Johnson syndrome [Recovered/Resolved]

NARRATIVE: CASE EVENT DATE: 20070120
